FAERS Safety Report 8365389-X (Version None)
Quarter: 2012Q2

REPORT INFORMATION
  Report Type: 
  Country: None (occurrence: None)
  Receive Date: 20120516
  Receipt Date: 20120509
  Transmission Date: 20120825
  Serious: Yes (Other)
  Sender: FDA-Public Use
  Company Number: PT-PFIZER INC-2012113187

PATIENT
  Sex: Female

DRUGS (5)
  1. PILOCARPINE [Concomitant]
     Dosage: UNK
  2. HYABAK [Concomitant]
     Dosage: UNK
  3. XALATAN [Suspect]
     Dosage: UNK
     Dates: end: 20120503
  4. COSOPT [Concomitant]
     Dosage: UNK
  5. ALPHAGAN [Concomitant]
     Dosage: UNK

REACTIONS (2)
  - INTRAOCULAR PRESSURE INCREASED [None]
  - EXPIRED DRUG ADMINISTERED [None]
